FAERS Safety Report 16597189 (Version 3)
Quarter: 2019Q3

REPORT INFORMATION
  Report Type: Report from Study
  Country: US (occurrence: US)
  Receive Date: 20190719
  Receipt Date: 20190816
  Transmission Date: 20191004
  Serious: Yes (Hospitalization, Other)
  Sender: FDA-Public Use
  Company Number: US-KYOWAKIRIN-2017CKK000226AA

PATIENT

DRUGS (5)
  1. TACROLIMUS. [Concomitant]
     Active Substance: TACROLIMUS
     Indication: PROPHYLAXIS AGAINST GRAFT VERSUS HOST DISEASE
     Dosage: UNK
     Dates: start: 20160425, end: 20160509
  2. FLUDARABINE [Concomitant]
     Active Substance: FLUDARABINE PHOSPHATE
     Dosage: 65 MG, UNK
     Dates: start: 20160421, end: 20160425
  3. METHOTREXATE. [Concomitant]
     Active Substance: METHOTREXATE
     Indication: PROPHYLAXIS AGAINST GRAFT VERSUS HOST DISEASE
     Dosage: UNK
     Dates: start: 20160429, end: 20160509
  4. BUSULFAN. [Concomitant]
     Active Substance: BUSULFAN
     Dosage: 72 MG, UNK
     Dates: start: 20160424, end: 20160425
  5. MOGAMULIZUMAB [Suspect]
     Active Substance: MOGAMULIZUMAB
     Indication: CUTANEOUS T-CELL LYMPHOMA
     Dosage: UNK
     Route: 042
     Dates: end: 20160412

REACTIONS (70)
  - Graft versus host disease [Recovered/Resolved]
  - Malaise [Recovered/Resolved]
  - Disease progression [Unknown]
  - Hypertension [Recovered/Resolved]
  - Dizziness [Recovered/Resolved]
  - Palpitations [Recovered/Resolved]
  - Arthralgia [Unknown]
  - Mental status changes [Recovered/Resolved]
  - Graft versus host disease in skin [Recovered/Resolved]
  - Oral pain [Unknown]
  - Mucosal inflammation [Recovered/Resolved]
  - Alopecia [Not Recovered/Not Resolved]
  - Graft versus host disease in gastrointestinal tract [Recovered/Resolved]
  - Dysgeusia [Recovered/Resolved]
  - Pulmonary congestion [Recovered/Resolved]
  - Influenza like illness [Recovered/Resolved]
  - Pharyngeal swelling [Unknown]
  - Osteonecrosis [Not Recovered/Not Resolved]
  - Dry mouth [Recovered/Resolved]
  - Fatigue [Recovered/Resolved]
  - Flight of ideas [Recovered/Resolved]
  - Pain of skin [Recovered/Resolved]
  - Sepsis [Recovered/Resolved]
  - Pain in extremity [Recovered/Resolved]
  - Cerumen impaction [Unknown]
  - Colitis [Not Recovered/Not Resolved]
  - Neck pain [Unknown]
  - Ventricular tachycardia [Unknown]
  - Productive cough [Recovered/Resolved]
  - Dysphagia [Recovered/Resolved]
  - Pharyngitis [Recovered/Resolved]
  - Lactic acidosis [Recovered/Resolved]
  - Fatigue [Recovered/Resolved]
  - Nasal congestion [Recovered/Resolved]
  - Oropharyngeal pain [Unknown]
  - Dry mouth [Recovered/Resolved]
  - Diarrhoea [Recovered/Resolved]
  - Graft versus host disease in skin [Not Recovered/Not Resolved]
  - Diarrhoea [Recovered/Resolved]
  - Sinus tachycardia [Recovered/Resolved]
  - Atrial fibrillation [Not Recovered/Not Resolved]
  - Oedema peripheral [Recovered/Resolved]
  - Thrombophlebitis superficial [Unknown]
  - Pyrexia [Recovered/Resolved]
  - Dry mouth [Recovered/Resolved]
  - Abdominal pain [Recovered/Resolved]
  - Abdominal pain [Recovered/Resolved]
  - Vision blurred [Recovered/Resolved]
  - Graft versus host disease in eye [Recovered/Resolved]
  - Sinusitis [Recovered/Resolved]
  - Decreased appetite [Recovered/Resolved]
  - Eye pruritus [Recovered/Resolved]
  - Dyspnoea [Recovered/Resolved]
  - Decreased appetite [Recovered/Resolved]
  - Diarrhoea [Recovered/Resolved]
  - Chronic graft versus host disease in skin [Unknown]
  - Diarrhoea [Recovered/Resolved]
  - Oropharyngeal pain [Recovered/Resolved]
  - Bronchitis [Recovered/Resolved]
  - Gastritis [Recovered/Resolved]
  - Acute kidney injury [Not Recovered/Not Resolved]
  - Early satiety [Recovered/Resolved]
  - Agitation [Unknown]
  - Musculoskeletal chest pain [Recovered/Resolved]
  - Pollakiuria [Recovered/Resolved]
  - Stem cell transplant [Not Recovered/Not Resolved]
  - Insomnia [Recovered/Resolved]
  - Rash pruritic [Recovered/Resolved]
  - Pleuritic pain [Recovered/Resolved]
  - Acute respiratory failure [Recovered/Resolved]

NARRATIVE: CASE EVENT DATE: 20160428
